FAERS Safety Report 8473840-X (Version None)
Quarter: 2012Q2

REPORT INFORMATION
  Report Type: 
  Country: None (occurrence: None)
  Receive Date: 20120628
  Receipt Date: 20120319
  Transmission Date: 20120825
  Serious: Yes (Other)
  Sender: FDA-Public Use
  Company Number: US-MYLANLABS-2011S1026001

PATIENT
  Age: 26 Year
  Sex: Male
  Weight: 72.58 kg

DRUGS (5)
  1. CLOZAPINE [Suspect]
     Dates: start: 20120109
  2. CLOZAPINE [Suspect]
     Indication: PSYCHOTIC DISORDER
     Dates: start: 20111109, end: 20111222
  3. LITHIUM CARBONATE [Concomitant]
     Dates: start: 20111215
  4. DEPAKOTE [Concomitant]
     Dates: start: 20110718, end: 20111219
  5. ANTIBIOTICS [Suspect]

REACTIONS (2)
  - GRANULOCYTOPENIA [None]
  - LEUKOPENIA [None]
